FAERS Safety Report 25685973 (Version 1)
Quarter: 2025Q3

REPORT INFORMATION
  Report Type: Spontaneous
  Country: US (occurrence: US)
  Receive Date: 20250815
  Receipt Date: 20250815
  Transmission Date: 20251020
  Serious: Yes (Other)
  Sender: NOVO NORDISK
  Company Number: US-NOVOPROD-1498408

PATIENT
  Age: 63 Year

DRUGS (1)
  1. OZEMPIC [Suspect]
     Active Substance: SEMAGLUTIDE
     Indication: Product used for unknown indication
     Dates: start: 202311, end: 202312

REACTIONS (5)
  - Gastrointestinal disorder [Not Recovered/Not Resolved]
  - Gastric pneumatosis [Not Recovered/Not Resolved]
  - Gastritis bacterial [Not Recovered/Not Resolved]
  - Gastritis [Not Recovered/Not Resolved]
  - Vomiting [Not Recovered/Not Resolved]
